FAERS Safety Report 23491223 (Version 1)
Quarter: 2024Q1

REPORT INFORMATION
  Report Type: Report from Study
  Country: GR (occurrence: GR)
  Receive Date: 20240207
  Receipt Date: 20240207
  Transmission Date: 20240410
  Serious: Yes (Hospitalization, Other)
  Sender: FDA-Public Use
  Company Number: GR-CELLTRION INC.-2024GR002536

PATIENT

DRUGS (2)
  1. INFLIXIMAB [Suspect]
     Active Substance: INFLIXIMAB
     Indication: Crohn^s disease
     Dosage: 3X100MG/EVERY 8 WEEKS
     Route: 042
     Dates: start: 20161121
  2. INFLIXIMAB [Suspect]
     Active Substance: INFLIXIMAB
     Dosage: EVEY 8 WEEKS
     Route: 042
     Dates: start: 20230705

REACTIONS (3)
  - Cataract [Recovered/Resolved]
  - Blindness [Not Recovered/Not Resolved]
  - Eye infection [Not Recovered/Not Resolved]
